FAERS Safety Report 5224007-X (Version None)
Quarter: 2007Q1

REPORT INFORMATION
  Report Type: 
  Country: None (occurrence: None)
  Receive Date: 20070130
  Receipt Date: 20070118
  Transmission Date: 20070707
  Serious: Yes (Hospitalization)
  Sender: FDA-Public Use
  Company Number: FR-ROCHE-479402

PATIENT
  Age: 37 Year
  Sex: Male
  Weight: 66 kg

DRUGS (7)
  1. PEGASYS [Suspect]
     Indication: HEPATITIS C
     Route: 058
     Dates: start: 20061020, end: 20061120
  2. COPEGUS [Suspect]
     Indication: HEPATITIS C
     Route: 048
     Dates: start: 20061020, end: 20061120
  3. HUMALOG [Concomitant]
  4. LANTUS [Concomitant]
  5. LEVOTHYROXINE SODIUM [Concomitant]
  6. ANDROTARDYL [Concomitant]
  7. DESFERAL [Concomitant]

REACTIONS (2)
  - CARDIOMYOPATHY [None]
  - GENERAL PHYSICAL HEALTH DETERIORATION [None]
